FAERS Safety Report 7232363-6 (Version None)
Quarter: 2011Q1

REPORT INFORMATION
  Report Type: 
  Country: None (occurrence: None)
  Receive Date: 20110119
  Receipt Date: 20110110
  Transmission Date: 20110831
  Serious: Yes (Hospitalization, Other)
  Sender: FDA-Public Use
  Company Number: FR-JNJFOC-20100210561

PATIENT
  Sex: Male
  Weight: 75 kg

DRUGS (4)
  1. ZYPREXA [Suspect]
     Indication: PRODUCT USED FOR UNKNOWN INDICATION
  2. LEPONEX [Suspect]
     Indication: PRODUCT USED FOR UNKNOWN INDICATION
  3. RISPERDAL CONSTA [Suspect]
     Route: 030
  4. RISPERDAL CONSTA [Suspect]
     Indication: DELIRIUM
     Route: 030

REACTIONS (5)
  - ASTHENIA [None]
  - OFF LABEL USE [None]
  - DYSKINESIA [None]
  - AGRANULOCYTOSIS [None]
  - EYELID PTOSIS [None]
